FAERS Safety Report 18356057 (Version 1)
Quarter: 2020Q4

REPORT INFORMATION
  Report Type: Report from Study
  Country: CA (occurrence: CA)
  Receive Date: 20201007
  Receipt Date: 20201007
  Transmission Date: 20210114
  Serious: Yes (Other)
  Sender: FDA-Public Use
  Company Number: CA-ASTRAZENECA-2020SF25920

PATIENT
  Age: 46 Year
  Sex: Female

DRUGS (12)
  1. PULMICORT TURBUHALER [Suspect]
     Active Substance: BUDESONIDE
     Indication: PRODUCT USED FOR UNKNOWN INDICATION
     Route: 055
  2. PANTOPRAZOLE SODIUM ANHYDROUS [Suspect]
     Active Substance: PANTOPRAZOLE SODIUM ANHYDROUS
     Indication: PRODUCT USED FOR UNKNOWN INDICATION
     Route: 065
  3. PREDNISONE. [Suspect]
     Active Substance: PREDNISONE
     Indication: PRODUCT USED FOR UNKNOWN INDICATION
     Route: 048
  4. SPIRIVA [Suspect]
     Active Substance: TIOTROPIUM BROMIDE MONOHYDRATE
     Route: 065
  5. FLUTICASONE FUROATE/VILANTEROL TRIFENATATE [Suspect]
     Active Substance: FLUTICASONE FUROATE\VILANTEROL TRIFENATATE
     Indication: PRODUCT USED FOR UNKNOWN INDICATION
     Route: 065
  6. CLONAZEPAM. [Concomitant]
     Active Substance: CLONAZEPAM
     Dosage: 0.25MG UNKNOWN
  7. ARNUITY ELLIPTA [Suspect]
     Active Substance: FLUTICASONE FUROATE
     Indication: PRODUCT USED FOR UNKNOWN INDICATION
     Route: 065
  8. SINGULAIR [Suspect]
     Active Substance: MONTELUKAST SODIUM
     Indication: PRODUCT USED FOR UNKNOWN INDICATION
     Route: 065
  9. CITALOPRAM [Concomitant]
     Active Substance: CITALOPRAM HYDROBROMIDE
  10. DEXILANT [Concomitant]
     Active Substance: DEXLANSOPRAZOLE
  11. ADVAIR HFA [Suspect]
     Active Substance: FLUTICASONE PROPIONATE\SALMETEROL XINAFOATE
     Indication: PRODUCT USED FOR UNKNOWN INDICATION
     Route: 065
  12. VENTOLIN HFA [Suspect]
     Active Substance: ALBUTEROL SULFATE
     Indication: PRODUCT USED FOR UNKNOWN INDICATION
     Route: 065

REACTIONS (29)
  - Blindness [Unknown]
  - Interstitial lung disease [Unknown]
  - Respiratory gas exchange disorder [Unknown]
  - Wheezing [Unknown]
  - Chest discomfort [Unknown]
  - Facial pain [Unknown]
  - Pyrexia [Unknown]
  - Asthma [Unknown]
  - Headache [Unknown]
  - Lung disorder [Unknown]
  - Obstructive airways disorder [Unknown]
  - Amenorrhoea [Unknown]
  - Eosinophilia [Unknown]
  - Diaphragmatic disorder [Unknown]
  - Dyspnoea [Unknown]
  - Lung consolidation [Unknown]
  - Pulmonary function test abnormal [Unknown]
  - Sinus disorder [Unknown]
  - Sinus pain [Unknown]
  - Therapeutic product effect incomplete [Unknown]
  - Atelectasis [Unknown]
  - Hepatic steatosis [Unknown]
  - Respiratory disorder [Unknown]
  - Respiratory distress [Unknown]
  - Acquired diaphragmatic eventration [Unknown]
  - Blood test abnormal [Unknown]
  - Paranasal sinus discomfort [Unknown]
  - Cough [Unknown]
  - Pulmonary fibrosis [Unknown]
